FAERS Safety Report 8585362-6 (Version None)
Quarter: 2012Q3

REPORT INFORMATION
  Report Type: 
  Country: None (occurrence: None)
  Receive Date: 20120810
  Receipt Date: 20120724
  Transmission Date: 20120928
  Serious: Yes (Death, Other)
  Sender: FDA-Public Use
  Company Number: US-ASTELLAS-2012US006829

PATIENT
  Sex: Female
  Weight: 58 kg

DRUGS (7)
  1. KEPPRA [Concomitant]
     Indication: PRODUCT USED FOR UNKNOWN INDICATION
     Dosage: 1000 MG, UID/QD
     Route: 048
     Dates: start: 20120322
  2. CHEMOTHERAPY [Concomitant]
     Indication: NON-SMALL CELL LUNG CANCER
     Dosage: UNK
     Route: 042
     Dates: start: 20120627
  3. STEROID [Concomitant]
     Indication: PRODUCT USED FOR UNKNOWN INDICATION
     Dosage: 4 MG, UID/QD
     Route: 048
  4. DEXAMETHASONE [Suspect]
     Indication: PRODUCT USED FOR UNKNOWN INDICATION
     Dosage: UNK
     Route: 065
  5. ERLOTINIB HYDROCHLORIDE [Suspect]
     Dosage: 150 MG, UID/QD
     Route: 048
     Dates: start: 20120512
  6. ERLOTINIB HYDROCHLORIDE [Suspect]
     Dosage: 25 MG, UID/QD
     Route: 048
     Dates: start: 20120507
  7. ERLOTINIB HYDROCHLORIDE [Suspect]
     Indication: NON-SMALL CELL LUNG CANCER
     Dosage: 50 MG, UID/QD
     Route: 048
     Dates: start: 20120430

REACTIONS (11)
  - INCORRECT DOSE ADMINISTERED [None]
  - DEATH [None]
  - DECUBITUS ULCER [None]
  - ORAL CANDIDIASIS [None]
  - DYSPHAGIA [None]
  - DYSPEPSIA [None]
  - EATING DISORDER [None]
  - ASTHENIA [None]
  - GASTROOESOPHAGEAL REFLUX DISEASE [None]
  - ANAEMIA [None]
  - RASH [None]
